FAERS Safety Report 9284250 (Version 1)
Quarter: 2013Q2

REPORT INFORMATION
  Report Type: Spontaneous
  Country: CA (occurrence: CA)
  Receive Date: 20130510
  Receipt Date: 20130510
  Transmission Date: 20140414
  Serious: Yes (Death, Hospitalization, Other)
  Sender: FDA-Public Use
  Company Number: CA-ASTRAZENECA-2013SE31955

PATIENT
  Sex: Female

DRUGS (2)
  1. SEROQUEL [Suspect]
     Route: 048
  2. RISPERIDONE [Concomitant]

REACTIONS (5)
  - Completed suicide [Fatal]
  - Antisocial behaviour [Unknown]
  - Borderline personality disorder [Unknown]
  - Abnormal behaviour [Unknown]
  - Drug effect decreased [Unknown]
